FAERS Safety Report 20051606 (Version 1)
Quarter: 2021Q4

REPORT INFORMATION
  Report Type: Spontaneous
  Country: US (occurrence: US)
  Receive Date: 20211110
  Receipt Date: 20211110
  Transmission Date: 20220303
  Serious: No
  Sender: FDA-Public Use
  Company Number: US-SA-SAC20211108000968

PATIENT
  Age: 51 Year
  Sex: Female

DRUGS (18)
  1. DUPIXENT [Suspect]
     Active Substance: DUPILUMAB
     Indication: Asthma
     Dosage: 200 MG, QOW
     Route: 058
     Dates: start: 20200218
  2. AZMACORT [Concomitant]
     Active Substance: TRIAMCINOLONE ACETONIDE
  3. COMBIVENT [Concomitant]
     Active Substance: ALBUTEROL SULFATE\IPRATROPIUM BROMIDE
  4. DIAZEPAM [Concomitant]
     Active Substance: DIAZEPAM
  5. ESTRACE [Concomitant]
     Active Substance: ESTRADIOL
  6. LEUPROLIDE ACETATE [Concomitant]
     Active Substance: LEUPROLIDE ACETATE
  7. LUPRON [Concomitant]
     Active Substance: LEUPROLIDE ACETATE
  8. METHYLPREDNISOLONE ACETATE [Concomitant]
     Active Substance: METHYLPREDNISOLONE ACETATE
  9. METHYPRED [METHYLPREDNISOLONE ACETATE] [Concomitant]
  10. PIROXICAM [Concomitant]
     Active Substance: PIROXICAM
  11. PREDNISONE ACETATE [Concomitant]
     Active Substance: PREDNISONE ACETATE
  12. PROGESTERONE [Concomitant]
     Active Substance: PROGESTERONE
  13. ZITHROMAX [Concomitant]
     Active Substance: AZITHROMYCIN DIHYDRATE
  14. DOXYCYCLINE [Concomitant]
     Active Substance: DOXYCYCLINE
  15. VITAMINS [Concomitant]
     Active Substance: VITAMINS
  16. PRILOSEC [Concomitant]
     Active Substance: OMEPRAZOLE MAGNESIUM
  17. SINGULAIR [Concomitant]
     Active Substance: MONTELUKAST SODIUM
  18. VIT D [VITAMIN D NOS] [Concomitant]

REACTIONS (2)
  - Sinusitis [Not Recovered/Not Resolved]
  - Product dose omission issue [Unknown]

NARRATIVE: CASE EVENT DATE: 20210915
